FAERS Safety Report 4892047-6 (Version None)
Quarter: 2006Q1

REPORT INFORMATION
  Report Type: 
  Country: None (occurrence: None)
  Receive Date: 20060125
  Receipt Date: 20051005
  Transmission Date: 20060701
  Serious: Yes (Hospitalization)
  Sender: FDA-Public Use
  Company Number: DL2005425

PATIENT
  Age: 25 Year
  Sex: Female

DRUGS (2)
  1. MIFEPRISTONE TABLETS, 200 MG (DANCO LABS) [Suspect]
     Indication: ABORTION INDUCED
     Dosage: 200 MG, ORAL
     Route: 048
     Dates: start: 20050620
  2. MISOPROSTOL [Suspect]
     Dosage: 400 MCG, ORAL
     Route: 048
     Dates: start: 20050623

REACTIONS (4)
  - ABORTION INCOMPLETE [None]
  - ANAEMIA [None]
  - ASTHENIA [None]
  - MENORRHAGIA [None]
